FAERS Safety Report 8579419-3 (Version None)
Quarter: 2012Q3

REPORT INFORMATION
  Report Type: 
  Country: None (occurrence: None)
  Receive Date: 20120808
  Receipt Date: 20120712
  Transmission Date: 20120928
  Serious: Yes (Other)
  Sender: FDA-Public Use
  Company Number: US-ROCHE-1087499

PATIENT

DRUGS (8)
  1. REMICADE [Concomitant]
  2. ENBREL [Concomitant]
  3. SIMPONI [Concomitant]
  4. RITUXAN [Suspect]
     Indication: PRODUCT USED FOR UNKNOWN INDICATION
     Route: 065
  5. ORENCIA [Concomitant]
  6. HUMIRA [Concomitant]
  7. METHOTREXATE [Concomitant]
  8. CIMZIA [Concomitant]

REACTIONS (4)
  - URTICARIA [None]
  - THROAT TIGHTNESS [None]
  - ADVERSE DRUG REACTION [None]
  - DYSPNOEA [None]
